FAERS Safety Report 5909947-8 (Version None)
Quarter: 2008Q4

REPORT INFORMATION
  Report Type: 
  Country: None (occurrence: None)
  Receive Date: 20081007
  Receipt Date: 20080929
  Transmission Date: 20090506
  Serious: Yes (Other)
  Sender: FDA-Public Use
  Company Number: US-ROCHE-588971

PATIENT
  Sex: Female
  Weight: 66.7 kg

DRUGS (1)
  1. CAPECITABINE [Suspect]
     Route: 065

REACTIONS (1)
  - DISEASE PROGRESSION [None]
